FAERS Safety Report 6764760-7 (Version None)
Quarter: 2010Q2

REPORT INFORMATION
  Report Type: 
  Country: None (occurrence: None)
  Receive Date: 20100610
  Receipt Date: 20100602
  Transmission Date: 20101027
  Serious: Yes (Other)
  Sender: FDA-Public Use
  Company Number: JP-B.I. PHARMACEUTICALS,INC./RIDGEFIELD-2010-BP-06289NB

PATIENT
  Sex: Female

DRUGS (4)
  1. BI-SIFROL TABLETS [Suspect]
     Indication: PARKINSON'S DISEASE
     Dosage: 0.5 MG
     Route: 048
     Dates: start: 20100512, end: 20100522
  2. SENNOSIDE [Concomitant]
     Route: 048
  3. NAUZELIN [Concomitant]
     Route: 048
  4. MIYA BM [Concomitant]
     Route: 048

REACTIONS (1)
  - NEUROLEPTIC MALIGNANT SYNDROME [None]
